FAERS Safety Report 10973624 (Version 1)
Quarter: 2015Q1

REPORT INFORMATION
  Report Type: Spontaneous
  Country: US (occurrence: None)
  Receive Date: 20150226
  Receipt Date: 20150226
  Transmission Date: 20150721
  Serious: No
  Sender: FDA-Public Use
  Company Number: TPA2009A03301

PATIENT
  Age: 49 Year
  Sex: Male
  Weight: 102.97 kg

DRUGS (3)
  1. ULORIC [Suspect]
     Active Substance: FEBUXOSTAT
     Indication: HYPERURICAEMIA
     Dosage: 40 MG, 1 IN 1 D, PER ORAL
     Route: 048
     Dates: start: 20090819, end: 20091019
  2. PIROXICAM. [Concomitant]
     Active Substance: PIROXICAM
  3. ULORIC [Suspect]
     Active Substance: FEBUXOSTAT
     Indication: GOUT
     Dosage: 40 MG, 1 IN 1 D, PER ORAL
     Route: 048
     Dates: start: 20090819, end: 20091019

REACTIONS (3)
  - Phlebitis [None]
  - Skin discolouration [None]
  - Skin lesion [None]
